FAERS Safety Report 10228721 (Version 4)
Quarter: 2014Q3

REPORT INFORMATION
  Report Type: Spontaneous
  Country: US (occurrence: US)
  Receive Date: 20140610
  Receipt Date: 20140715
  Transmission Date: 20150326
  Serious: Yes (Death, Hospitalization, Other)
  Sender: FDA-Public Use
  Company Number: US-009507513-1406USA004563

PATIENT
  Sex: Male
  Weight: 99.77 kg

DRUGS (1)
  1. JANUVIA [Suspect]
     Active Substance: SITAGLIPTIN PHOSPHATE
     Indication: TYPE 2 DIABETES MELLITUS
     Dosage: 100 MG, QD
     Route: 048
     Dates: start: 20080608, end: 20110718

REACTIONS (28)
  - Pancreatic carcinoma metastatic [Fatal]
  - Urinary tract infection bacterial [Unknown]
  - Haemorrhoids [Unknown]
  - Clostridium difficile infection [Unknown]
  - Colitis ischaemic [Unknown]
  - Aortic calcification [Unknown]
  - Atelectasis [Unknown]
  - Prostatomegaly [Unknown]
  - Haemorrhoid operation [Unknown]
  - Decreased appetite [Recovered/Resolved]
  - Metastases to liver [Unknown]
  - Asthenia [Unknown]
  - Protein urine present [Unknown]
  - Mitral valve calcification [Unknown]
  - Drug ineffective [Unknown]
  - Cerebrovascular accident [Unknown]
  - Syncope [Unknown]
  - Drug ineffective [Unknown]
  - Hyponatraemia [Recovering/Resolving]
  - Diverticulum intestinal [Unknown]
  - Asthenia [Not Recovered/Not Resolved]
  - Catheter placement [Unknown]
  - Atrioventricular block first degree [Unknown]
  - Iron deficiency anaemia [Unknown]
  - Thyroid neoplasm [Recovered/Resolved]
  - Cardiomegaly [Unknown]
  - Candida infection [Unknown]
  - Hyponatraemia [Not Recovered/Not Resolved]

NARRATIVE: CASE EVENT DATE: 201011
